FAERS Safety Report 8171106-9 (Version None)
Quarter: 2012Q1

REPORT INFORMATION
  Report Type: 
  Country: None (occurrence: None)
  Receive Date: 20120228
  Receipt Date: 20120221
  Transmission Date: 20120608
  Serious: Yes (Other)
  Sender: FDA-Public Use
  Company Number: PHHY2011CA97029

PATIENT
  Sex: Male

DRUGS (6)
  1. LIPITOR [Concomitant]
     Dosage: 60 MG, QHS
  2. LIORESAL [Concomitant]
     Dosage: 10 MG, TID
  3. ATIVAN [Concomitant]
     Dosage: 1 MG, QHS
  4. GILENYA [Suspect]
     Indication: RELAPSING-REMITTING MULTIPLE SCLEROSIS
     Dosage: 0.5 MG, DAILY
     Route: 048
     Dates: start: 20111006, end: 20120217
  5. CLONAZEPAM [Concomitant]
     Dosage: 0.5 MG, UNK
     Route: 048
  6. CELEXA [Concomitant]
     Dosage: 20 MG, QD

REACTIONS (12)
  - LYMPHOCYTE COUNT DECREASED [None]
  - PAIN IN EXTREMITY [None]
  - MUSCLE SPASMS [None]
  - WHITE BLOOD CELL COUNT DECREASED [None]
  - FATIGUE [None]
  - CHEST PAIN [None]
  - INFECTION [None]
  - INFLUENZA LIKE ILLNESS [None]
  - SINUSITIS [None]
  - NEUTROPHIL COUNT INCREASED [None]
  - NASOPHARYNGITIS [None]
  - DRY SKIN [None]
